FAERS Safety Report 4837938-7 (Version None)
Quarter: 2005Q4

REPORT INFORMATION
  Report Type: 
  Country: None (occurrence: None)
  Receive Date: 20051128
  Receipt Date: 20051114
  Transmission Date: 20060501
  Serious: Yes (Other)
  Sender: FDA-Public Use
  Company Number: JP-ROCHE-424765

PATIENT
  Age: 65 Year
  Sex: Male

DRUGS (6)
  1. RIBAVIRIN [Suspect]
     Route: 065
     Dates: start: 20030502, end: 20030514
  2. RIBAVIRIN [Suspect]
     Route: 065
     Dates: start: 20030515, end: 20030527
  3. RIBAVIRIN [Suspect]
     Route: 065
     Dates: start: 20030617, end: 20030825
  4. FERON [Suspect]
     Route: 065
     Dates: start: 20030418
  5. INTRON A [Suspect]
     Route: 065
     Dates: start: 20030615
  6. INTRON A [Suspect]
     Route: 065
     Dates: end: 20030825

REACTIONS (8)
  - ANAEMIA [None]
  - ANOREXIA [None]
  - DYSPHONIA [None]
  - HEPATITIS C RNA POSITIVE [None]
  - LEUKOPLAKIA [None]
  - ORAL LICHEN PLANUS [None]
  - VOCAL CORD DISORDER [None]
  - VOMITING [None]
